FAERS Safety Report 5808182-1 (Version None)
Quarter: 2008Q3

REPORT INFORMATION
  Report Type: 
  Country: None (occurrence: None)
  Receive Date: 20080709
  Receipt Date: 20080626
  Transmission Date: 20090109
  Serious: Yes (Other)
  Sender: FDA-Public Use
  Company Number: 2008017085

PATIENT
  Age: 15 Year
  Sex: Female
  Weight: 108.8633 kg

DRUGS (1)
  1. VISINE TEARS (GLYCERIN, POLYETHYLENE GLYCOL, HYDROXYPROPYLMETHYLCELLUL [Suspect]
     Indication: EYE PRURITUS
     Dosage: 2 DROPS ONCE PER DAY, OPHTHALMIC
     Route: 047
     Dates: start: 20080620, end: 20080622

REACTIONS (4)
  - APPLICATION SITE IRRITATION [None]
  - BLINDNESS UNILATERAL [None]
  - CHEMICAL BURNS OF EYE [None]
  - EYE BURNS [None]
